FAERS Safety Report 22017834 (Version 2)
Quarter: 2023Q2

REPORT INFORMATION
  Report Type: Spontaneous
  Country: PT (occurrence: None)
  Receive Date: 20230221
  Receipt Date: 20230407
  Transmission Date: 20230722
  Serious: Yes (Other)
  Sender: FDA-Public Use
  Company Number: 2023A042902

PATIENT
  Age: 56 Year
  Sex: Female

DRUGS (3)
  1. OMEPRAZOLE [Suspect]
     Active Substance: OMEPRAZOLE
     Indication: Product used for unknown indication
     Route: 048
  2. PREDNISOLONE [Concomitant]
     Active Substance: PREDNISOLONE
  3. ACECLOFENAC [Concomitant]
     Active Substance: ACECLOFENAC

REACTIONS (2)
  - Alkalosis hypochloraemic [Recovering/Resolving]
  - Gitelman^s syndrome [Recovering/Resolving]
